FAERS Safety Report 6565067-3 (Version None)
Quarter: 2010Q1

REPORT INFORMATION
  Report Type: 
  Country: None (occurrence: None)
  Receive Date: 20100201
  Receipt Date: 20100121
  Transmission Date: 20100710
  Serious: Yes (Other)
  Sender: FDA-Public Use
  Company Number: US-JNJCH-2010002660

PATIENT
  Age: 58 Year
  Sex: Female
  Weight: 67.1 kg

DRUGS (7)
  1. BENADRYL [Suspect]
     Indication: DRUG USE FOR UNKNOWN INDICATION
     Dosage: TEXT:ONE TABLET AS NEEDED
     Route: 048
  2. BENADRYL ALLERGY KAPGELS [Suspect]
     Indication: DRUG USE FOR UNKNOWN INDICATION
     Dosage: TEXT:UNSPECIFIED
     Route: 048
  3. EXTRA STRENGTH TYLENOL [Suspect]
     Indication: DRUG USE FOR UNKNOWN INDICATION
     Dosage: TEXT:UNSPECIFIED
     Route: 048
  4. EXTRA STRENGTH TYLENOL PM [Suspect]
     Indication: SLEEP DISORDER
     Dosage: TEXT:TWO GELTAB AS NEEDED
     Route: 048
  5. TRAMADOL [Concomitant]
     Indication: SPINAL FUSION SURGERY
     Route: 048
  6. SUMATRIPTAN SUCCINATE [Concomitant]
     Indication: HEADACHE
     Route: 048
  7. FLEXERIL [Concomitant]
     Indication: SLEEP DISORDER
     Route: 048

REACTIONS (9)
  - CONDITION AGGRAVATED [None]
  - MALAISE [None]
  - MIGRAINE [None]
  - MUSCLE SPASMS [None]
  - NAUSEA [None]
  - OFF LABEL USE [None]
  - SPINAL DISORDER [None]
  - VOMITING [None]
  - WEIGHT DECREASED [None]
